FAERS Safety Report 17990876 (Version 24)
Quarter: 2022Q3

REPORT INFORMATION
  Report Type: Spontaneous
  Country: GB (occurrence: GB)
  Receive Date: 20200707
  Receipt Date: 20220926
  Transmission Date: 20221027
  Serious: Yes (Hospitalization, Other)
  Sender: FDA-Public Use
  Company Number: GB-MYLANLABS-2020M1060756

PATIENT
  Sex: Male

DRUGS (65)
  1. LAMIVUDINE [Suspect]
     Active Substance: LAMIVUDINE
     Indication: Product used for unknown indication
     Dosage: 300 MILLIGRAM, QD, (300 MG, QD)
     Route: 065
  2. LAMIVUDINE [Suspect]
     Active Substance: LAMIVUDINE
     Dosage: 300 MILLIGRAM, QD,  (STRENGTH 300, OD 1 1 D 300MG)
     Route: 065
  3. LAMIVUDINE [Suspect]
     Active Substance: LAMIVUDINE
     Dosage: 100 MILLIGRAM, QD (4 DOSES)
     Route: 065
  4. LAMIVUDINE [Suspect]
     Active Substance: LAMIVUDINE
     Dosage: UNK, QD, (UNK UNK, QD, 100 OD)
     Route: 065
  5. LAMIVUDINE [Suspect]
     Active Substance: LAMIVUDINE
     Dosage: 300 MILLIGRAM, QD (2 DOSES)
     Route: 065
  6. LAMIVUDINE [Suspect]
     Active Substance: LAMIVUDINE
     Dosage: 100 MILLIGRAM, QD, (100 MG, QD)
     Route: 065
  7. LAMIVUDINE [Suspect]
     Active Substance: LAMIVUDINE
     Dosage: 100 MILLIGRAM, QD, (100 MG, 1D, 100 MG, QD (STRENGTH 100, OD))
     Route: 065
  8. LAMIVUDINE [Suspect]
     Active Substance: LAMIVUDINE
     Dosage: UNK UNK, QD, 100 OD
     Route: 065
  9. LAMIVUDINE [Suspect]
     Active Substance: LAMIVUDINE
     Dosage: 300 MILLIGRAM, QD (300 MG, QD (STRENGTH 300, OD))
     Route: 065
  10. LAMIVUDINE [Suspect]
     Active Substance: LAMIVUDINE
     Dosage: 300 MILLIGRAM, QD
     Route: 065
  11. LAMIVUDINE [Suspect]
     Active Substance: LAMIVUDINE
     Dosage: 600 MILLIGRAM, QD (600 MG, QD)
     Route: 065
  12. LAMIVUDINE [Suspect]
     Active Substance: LAMIVUDINE
     Dosage: 300 MILLIGRAM, QD
     Route: 065
  13. LAMIVUDINE [Suspect]
     Active Substance: LAMIVUDINE
     Dosage: 100 MILLIGRAM, QD (100 MG, QD (STRENGTH 100, OD)
     Route: 065
  14. LAMIVUDINE [Suspect]
     Active Substance: LAMIVUDINE
     Dosage: 100 MILLIGRAM, QD
     Route: 065
  15. LAMIVUDINE [Suspect]
     Active Substance: LAMIVUDINE
     Dosage: 100 MILLIGRAM, QD
     Route: 065
  16. LAMIVUDINE [Suspect]
     Active Substance: LAMIVUDINE
     Dosage: 100 MILLIGRAM, QD
     Route: 065
  17. LAMIVUDINE [Suspect]
     Active Substance: LAMIVUDINE
     Dosage: 100 MILLIGRAM, QD
     Route: 065
  18. LAMIVUDINE [Suspect]
     Active Substance: LAMIVUDINE
     Dosage: 600 MILLIGRAM, QD
     Route: 065
  19. ABACAVIR [Suspect]
     Active Substance: ABACAVIR
     Indication: Product used for unknown indication
     Dosage: QD (STRENGTH 300, OD)
     Route: 065
  20. ABACAVIR [Suspect]
     Active Substance: ABACAVIR
     Dosage: 600 MILLIGRAM, QD
     Route: 065
  21. ABACAVIR [Suspect]
     Active Substance: ABACAVIR
     Dosage: 300 MILLIGRAM, QD,  (STRENGTH 300, OD)
     Route: 065
  22. ABACAVIR [Suspect]
     Active Substance: ABACAVIR
     Dosage: 300 MILLIGRAM, QD, (300 MG, 1D)
     Route: 065
  23. ABACAVIR [Suspect]
     Active Substance: ABACAVIR
     Dosage: 300 MILLIGRAM, QD
     Route: 065
  24. ABACAVIR [Suspect]
     Active Substance: ABACAVIR
     Dosage: QD (STRENGTH 300, OD)
     Route: 065
  25. ABACAVIR [Suspect]
     Active Substance: ABACAVIR
     Dosage: 600 MILLIGRAM, QD
     Route: 065
  26. ABACAVIR [Suspect]
     Active Substance: ABACAVIR
     Dosage: 600 MG, QD (600 MILLIGRAM, ONCE A DAY91D,600 CAPSULE)
     Route: 065
  27. ABACAVIR [Suspect]
     Active Substance: ABACAVIR
     Dosage: 1 DOSAGE FORM, QD, ONCE A DAY (STRENGTH 300, OD)
     Route: 065
  28. ABACAVIR [Suspect]
     Active Substance: ABACAVIR
     Dosage: UNK
     Route: 065
  29. ABACAVIR [Suspect]
     Active Substance: ABACAVIR
     Dosage: 600 MILLIGRAM, QD(UNK UNK, 1D,600 CAPSULE )
     Route: 065
  30. ABACAVIR [Suspect]
     Active Substance: ABACAVIR
     Dosage: 300 MILLIGRAM, QD (6 DOSES)
     Route: 065
  31. ABACAVIR [Suspect]
     Active Substance: ABACAVIR
     Dosage: 300 MILLIGRAM, QD
     Route: 065
  32. ABACAVIR [Suspect]
     Active Substance: ABACAVIR
     Dosage: 300 MILLIGRAM, QD
     Route: 065
  33. ABACAVIR [Suspect]
     Active Substance: ABACAVIR
     Dosage: 1 DOSAGE FORM, QD (3 DOSES)
     Route: 065
  34. ABACAVIR [Suspect]
     Active Substance: ABACAVIR
     Dosage: 600 MILLIGRAM, QD (7 DOSES)
     Route: 065
  35. ABACAVIR [Suspect]
     Active Substance: ABACAVIR
     Dosage: 600 MILLIGRAM, QD
     Route: 065
  36. ABACAVIR [Suspect]
     Active Substance: ABACAVIR
     Dosage: UNK
     Route: 065
  37. EFAVIRENZ [Suspect]
     Active Substance: EFAVIRENZ
     Indication: Product used for unknown indication
     Dosage: QD (STRENGTH 600)
     Route: 065
  38. EFAVIRENZ [Suspect]
     Active Substance: EFAVIRENZ
     Dosage: 1 DOSAGE FORM, QD (STRENGTH 600)
     Route: 065
  39. EFAVIRENZ [Suspect]
     Active Substance: EFAVIRENZ
     Dosage: 600 MILLIGRAM, QD, (600 MG, 1D,UNK UNK, 1D,600)
     Route: 065
  40. EFAVIRENZ [Suspect]
     Active Substance: EFAVIRENZ
     Dosage: 600 MILLIGRAM, QD(600 MILLIGRAM, QD, (600 MG, 1D,UNK UNK, 1D,600)
     Route: 065
  41. EFAVIRENZ [Suspect]
     Active Substance: EFAVIRENZ
     Dosage: UNK, ONCE A DAY
     Route: 065
  42. EFAVIRENZ [Suspect]
     Active Substance: EFAVIRENZ
     Dosage: 300 MILLIGRAM, QD (300 MG, QD, CAPSULE
     Route: 065
  43. EFAVIRENZ [Suspect]
     Active Substance: EFAVIRENZ
     Dosage: 600 MILLIGRAM, QD(600 MILLIGRAM, QD, 1 DAY)
     Route: 065
  44. EFAVIRENZ [Suspect]
     Active Substance: EFAVIRENZ
     Dosage: 600 MILLIGRAM, QD(UNK UNK, QD (STRENGTH 600))
     Route: 065
  45. EFAVIRENZ [Suspect]
     Active Substance: EFAVIRENZ
     Dosage: 1 DOSAGE FORM, QD
     Route: 065
  46. EFAVIRENZ [Suspect]
     Active Substance: EFAVIRENZ
     Dosage: 600 MILLIGRAM, QD
     Route: 065
  47. LAMIVUDINE [Suspect]
     Active Substance: LAMIVUDINE
     Indication: Product used for unknown indication
     Dosage: 100 MILLIGRAM, QD, (STRENGTH 100, OD)
     Route: 065
  48. LAMIVUDINE [Suspect]
     Active Substance: LAMIVUDINE
     Dosage: 100 MILLIGRAM, QD, ONCE A DAY 4 DOSES
     Route: 065
  49. LAMIVUDINE [Suspect]
     Active Substance: LAMIVUDINE
     Dosage: 300 MILLIGRAM, QD
     Route: 065
  50. LAMIVUDINE [Suspect]
     Active Substance: LAMIVUDINE
     Dosage: 300 MILLIGRAM, QD, (STRENGTH 300, OD 1 1 D 300MG)
     Route: 065
  51. LAMIVUDINE [Suspect]
     Active Substance: LAMIVUDINE
     Dosage: 100 MILLIGRAM, QD, (STRENGTH 100 OD)
     Route: 065
  52. LAMIVUDINE [Suspect]
     Active Substance: LAMIVUDINE
     Dosage: 600 MILLIGRAM, QD
     Route: 065
  53. LAMIVUDINE [Suspect]
     Active Substance: LAMIVUDINE
     Dosage: UNK, QD (ONCE A DAY)
     Route: 065
  54. LAMIVUDINE [Suspect]
     Active Substance: LAMIVUDINE
     Dosage: UNK, QD (STRENGTH 100 OD)
     Route: 065
  55. LAMIVUDINE [Suspect]
     Active Substance: LAMIVUDINE
     Dosage: 300 MILLIGRAM, QD(300 MILLIGRAM, QD (STRENGTH 100 OD))
     Route: 065
  56. LAMIVUDINE [Suspect]
     Active Substance: LAMIVUDINE
     Dosage: 100 MILLIGRAM, QD (UNK UNK, 1D,100 , UNIT DOSE : 100 MG)
     Route: 065
  57. LAMIVUDINE [Suspect]
     Active Substance: LAMIVUDINE
     Dosage: 100 MILLIGRAM, QD
     Route: 065
  58. LAMIVUDINE [Suspect]
     Active Substance: LAMIVUDINE
     Dosage: 100 MILLIGRAM, QD
     Route: 065
  59. LAMIVUDINE [Suspect]
     Active Substance: LAMIVUDINE
     Dosage: 300 MG, QD (STRENGTH 300, OD 1 1 D 300MG), UNIT DOSE: 300 MG)
     Route: 065
  60. LAMIVUDINE [Suspect]
     Active Substance: LAMIVUDINE
     Dosage: 100 MILLIGRAM, QD
     Route: 065
  61. ABACAVIR SULFATE [Suspect]
     Active Substance: ABACAVIR SULFATE
     Indication: Product used for unknown indication
     Dosage: 300 MILLIGRAM, QD ( QD (1D, 300))
     Route: 065
  62. ABACAVIR SULFATE [Suspect]
     Active Substance: ABACAVIR SULFATE
     Dosage: 600 MILLIGRAM, QD
     Route: 065
  63. ABACAVIR SULFATE [Suspect]
     Active Substance: ABACAVIR SULFATE
     Dosage: 1 DOSAGE FORM, QD (STRENGTH 300, OD)
     Route: 065
  64. ABACAVIR SULFATE [Suspect]
     Active Substance: ABACAVIR SULFATE
     Dosage: (UNK UNK, QD, 300, OD)
     Route: 065
  65. ABACAVIR SULFATE [Suspect]
     Active Substance: ABACAVIR SULFATE
     Dosage: 600 MILLIGRAM, QD
     Route: 065

REACTIONS (6)
  - Lung neoplasm malignant [Unknown]
  - Lung cancer metastatic [Unknown]
  - Metastases to central nervous system [Unknown]
  - Life expectancy shortened [Not Recovered/Not Resolved]
  - Feeling abnormal [Unknown]
  - Malaise [Unknown]
